FAERS Safety Report 7956408-0 (Version None)
Quarter: 2011Q4

REPORT INFORMATION
  Report Type: 
  Country: None (occurrence: None)
  Receive Date: 20111205
  Receipt Date: 20111129
  Transmission Date: 20120403
  Serious: Yes (Other)
  Sender: FDA-Public Use
  Company Number: TR-AMGEN-TURSP2011063766

PATIENT
  Age: 54 Year
  Sex: Female

DRUGS (6)
  1. METHOTREXATE [Concomitant]
     Dosage: 15 MG, QWK
     Route: 048
  2. PLAQUENIL [Concomitant]
     Dosage: UNK UNK, QD
     Route: 048
  3. ENBREL [Suspect]
     Dosage: 25 MG, 2X/WEEK
     Dates: start: 20111129
  4. ENBREL [Suspect]
     Indication: RHEUMATOID ARTHRITIS
     Dosage: 50 MG, WEEKLY
     Route: 058
     Dates: start: 20110606, end: 20110901
  5. PREDNOL                            /00049601/ [Concomitant]
     Dosage: UNK UNK, BID
     Route: 048
  6. ENBREL [Suspect]
     Dosage: 25 MG, WEEKLY
     Dates: start: 20110901, end: 20111101

REACTIONS (5)
  - INJECTION SITE SWELLING [None]
  - INJECTION SITE ERYTHEMA [None]
  - INJECTION SITE PRURITUS [None]
  - RHEUMATOID ARTHRITIS [None]
  - INJECTION SITE PAIN [None]
